FAERS Safety Report 10312681 (Version 1)
Quarter: 2014Q3

REPORT INFORMATION
  Report Type: Spontaneous
  Country: US (occurrence: None)
  Receive Date: 20140717
  Receipt Date: 20140717
  Transmission Date: 20150326
  Serious: Yes (Death)
  Sender: FDA-Public Use
  Company Number: None

PATIENT
  Age: 35 Year
  Sex: Male
  Weight: 136.08 kg

DRUGS (1)
  1. VIIBRYD [Suspect]
     Active Substance: VILAZODONE HYDROCHLORIDE
     Indication: DEPRESSION
     Dosage: 30 TABS, ONCE DAILY, TAKEN BY MOUTH
     Route: 048
     Dates: start: 20140516, end: 20140602

REACTIONS (1)
  - Completed suicide [None]

NARRATIVE: CASE EVENT DATE: 20140605
